FAERS Safety Report 6360100-6 (Version None)
Quarter: 2009Q3

REPORT INFORMATION
  Report Type: 
  Country: None (occurrence: None)
  Receive Date: 20090917
  Receipt Date: 20090910
  Transmission Date: 20100115
  Serious: Yes (Disabling)
  Sender: FDA-Public Use
  Company Number: PHHY2009IT32257

PATIENT
  Sex: Female

DRUGS (9)
  1. ZOMETA [Suspect]
     Indication: METASTASES TO BONE
     Dosage: UNK
     Dates: start: 20030801, end: 20071231
  2. ZOMETA [Suspect]
     Indication: BREAST CANCER
  3. METFORAL [Concomitant]
  4. ESKIM [Concomitant]
     Dosage: 1000 MG
  5. SIVASTIN [Concomitant]
  6. VENITRIN [Concomitant]
  7. ASPIRIN [Concomitant]
  8. DILTIAZEM [Concomitant]
  9. FEMARA [Concomitant]

REACTIONS (3)
  - BONE DISORDER [None]
  - OSTEONECROSIS [None]
  - SEQUESTRECTOMY [None]
